FAERS Safety Report 6877882-7 (Version None)
Quarter: 2010Q3

REPORT INFORMATION
  Report Type: 
  Country: None (occurrence: None)
  Receive Date: 20100727
  Receipt Date: 20100719
  Transmission Date: 20110219
  Serious: Yes (Other)
  Sender: FDA-Public Use
  Company Number: PHHY2010BR47692

PATIENT
  Sex: Male

DRUGS (3)
  1. FORASEQ [Suspect]
     Indication: RESPIRATORY DISORDER
     Dosage: 12/400 MCG, ONCE A DAY
  2. DECADRON [Concomitant]
     Indication: LUNG NEOPLASM MALIGNANT
     Dosage: 2 TABLETS/DAILY
     Route: 048
  3. OMEPRAZOLE [Concomitant]
     Indication: GASTROINTESTINAL DISORDER
     Dosage: 1 TABLET/DAY
     Route: 048

REACTIONS (3)
  - GENERAL PHYSICAL CONDITION ABNORMAL [None]
  - LUNG NEOPLASM [None]
  - MALAISE [None]
